FAERS Safety Report 8229084-X (Version None)
Quarter: 2012Q1

REPORT INFORMATION
  Report Type: 
  Country: None (occurrence: None)
  Receive Date: 20120322
  Receipt Date: 20120308
  Transmission Date: 20120608
  Serious: Yes (Other)
  Sender: FDA-Public Use
  Company Number: US-WATSON-2012-04171

PATIENT
  Age: 80 Year
  Sex: Male

DRUGS (1)
  1. RAPAFLO [Suspect]
     Indication: BENIGN PROSTATIC HYPERPLASIA
     Dosage: 8 MG, DAILY X 1 WEEK
     Route: 048
     Dates: start: 20120101, end: 20120101

REACTIONS (3)
  - ORTHOSTATIC HYPOTENSION [None]
  - DIZZINESS [None]
  - LOSS OF CONSCIOUSNESS [None]
